FAERS Safety Report 9414120 (Version 1)
Quarter: 2013Q3

REPORT INFORMATION
  Report Type: Spontaneous
  Country: US (occurrence: US)
  Receive Date: 20130723
  Receipt Date: 20130723
  Transmission Date: 20140515
  Serious: Yes (Death)
  Sender: FDA-Public Use
  Company Number: US-PFIZER INC-2013211803

PATIENT
  Age: 77 Year
  Sex: Female
  Weight: 60.77 kg

DRUGS (8)
  1. SUTENT [Suspect]
     Dosage: 50 MG, 1X/DAY
     Dates: start: 20130429
  2. PROZAC [Concomitant]
     Dosage: UNK
  3. BIOTENE [Concomitant]
     Dosage: UNK
  4. PRILOSEC [Concomitant]
     Dosage: UNK
  5. FISH OIL [Concomitant]
     Dosage: UNK
  6. PROMETHAZINE HYDROCHLORIDE [Concomitant]
     Dosage: UNK
  7. PROCRIT [Concomitant]
     Dosage: UNK
  8. MARINOL [Concomitant]
     Dosage: UNK

REACTIONS (1)
  - Death [Fatal]
